FAERS Safety Report 9553462 (Version 2)
Quarter: 2013Q3

REPORT INFORMATION
  Report Type: Spontaneous
  Country: US (occurrence: US)
  Receive Date: 20130925
  Receipt Date: 20130925
  Transmission Date: 20140515
  Serious: Yes (Other)
  Sender: FDA-Public Use
  Company Number: US-TEVA-429303USA

PATIENT
  Sex: Female

DRUGS (1)
  1. CARVEDILOL [Suspect]
     Dosage: 25 MILLIGRAM DAILY;

REACTIONS (2)
  - Sinusitis [Unknown]
  - Headache [Unknown]
